FAERS Safety Report 14375349 (Version 2)
Quarter: 2018Q1

REPORT INFORMATION
  Report Type: Spontaneous
  Country: US (occurrence: US)
  Receive Date: 20180111
  Receipt Date: 20180111
  Transmission Date: 20180509
  Serious: Yes (Other)
  Sender: FDA-Public Use
  Company Number: US-GLAXOSMITHKLINE-US2018003352

PATIENT
  Sex: Female

DRUGS (11)
  1. METHOTREXATE. [Concomitant]
     Active Substance: METHOTREXATE
  2. ATENOLOL. [Concomitant]
     Active Substance: ATENOLOL
  3. FOLIC ACID. [Concomitant]
     Active Substance: FOLIC ACID
  4. CYMBALTA [Concomitant]
     Active Substance: DULOXETINE HYDROCHLORIDE
  5. FLONASE [Suspect]
     Active Substance: FLUTICASONE PROPIONATE
     Indication: PRODUCT USED FOR UNKNOWN INDICATION
  6. ASPIRIN. [Concomitant]
     Active Substance: ASPIRIN
  7. PERCOCET [Concomitant]
     Active Substance: ACETAMINOPHEN\OXYCODONE HYDROCHLORIDE
  8. PREDNISONE. [Concomitant]
     Active Substance: PREDNISONE
  9. XANAX [Concomitant]
     Active Substance: ALPRAZOLAM
  10. BENLYSTA [Suspect]
     Active Substance: BELIMUMAB
     Indication: PRODUCT USED FOR UNKNOWN INDICATION
     Dosage: 200 MG, WE
     Route: 058
  11. LIDOCAINE. [Concomitant]
     Active Substance: LIDOCAINE

REACTIONS (1)
  - Pneumonia [Recovering/Resolving]
